FAERS Safety Report 10679915 (Version 1)
Quarter: 2014Q4

REPORT INFORMATION
  Report Type: Spontaneous
  Country: RO (occurrence: RO)
  Receive Date: 20141229
  Receipt Date: 20141229
  Transmission Date: 20150529
  Serious: Yes (Hospitalization, Other)
  Sender: FDA-Public Use
  Company Number: RO-ACTAVIS-2014-27380

PATIENT
  Age: 58 Year
  Sex: Female
  Weight: 45 kg

DRUGS (6)
  1. CYCLOPHOSPHAMIDE (UNKNOWN) [Suspect]
     Active Substance: CYCLOPHOSPHAMIDE
     Indication: INVASIVE DUCTAL BREAST CARCINOMA
     Dosage: UNK, CYCLICAL, 6 CYCLES
     Route: 065
     Dates: start: 2013
  2. EPIRUBICIN (UNKNOWN) [Suspect]
     Active Substance: EPIRUBICIN
     Dosage: UNK, CYCLICAL,1 CYCLE
     Route: 065
     Dates: start: 2003
  3. 5 FLUOROURACIL                     /00098801/ [Concomitant]
     Active Substance: FLUOROURACIL
     Indication: INVASIVE DUCTAL BREAST CARCINOMA
     Dosage: UNK, CYCLICAL,12 CYCLES
     Route: 065
     Dates: start: 2003
  4. CYCLOPHOSPHAMIDE (UNKNOWN) [Suspect]
     Active Substance: CYCLOPHOSPHAMIDE
     Dosage: UNK, CYCLICAL,12 CYCLES
     Route: 065
     Dates: start: 2003
  5. 5 FLUOROURACIL                     /00098801/ [Concomitant]
     Active Substance: FLUOROURACIL
     Dosage: UNK, CYCLICAL,6 CYCLES
     Route: 065
     Dates: start: 2013
  6. EPIRUBICIN (UNKNOWN) [Suspect]
     Active Substance: EPIRUBICIN
     Indication: INVASIVE DUCTAL BREAST CARCINOMA
     Dosage: UNK, CYCLICAL,6 CYCLES
     Route: 065
     Dates: start: 2013

REACTIONS (1)
  - Cytotoxic cardiomyopathy [Not Recovered/Not Resolved]
